FAERS Safety Report 6300138-8 (Version None)
Quarter: 2009Q3

REPORT INFORMATION
  Report Type: 
  Country: None (occurrence: None)
  Receive Date: 20090806
  Receipt Date: 20090731
  Transmission Date: 20100115
  Serious: Yes (Other)
  Sender: FDA-Public Use
  Company Number: US-AMGEN-QUU358274

PATIENT
  Sex: Male

DRUGS (4)
  1. EPOGEN [Suspect]
     Indication: RENAL FAILURE CHRONIC
     Route: 042
     Dates: start: 20080701
  2. METOPROLOL SUCCINATE [Concomitant]
  3. NIFEDIPINE [Concomitant]
  4. HYDRALAZINE HCL [Concomitant]

REACTIONS (2)
  - APLASIA PURE RED CELL [None]
  - HYPERTENSION [None]
